FAERS Safety Report 12639650 (Version 2)
Quarter: 2016Q3

REPORT INFORMATION
  Report Type: Spontaneous
  Country: US (occurrence: US)
  Receive Date: 20160810
  Receipt Date: 20160909
  Transmission Date: 20161109
  Serious: Yes (Other)
  Sender: FDA-Public Use
  Company Number: US-009507513-1608USA004974

PATIENT
  Sex: Male

DRUGS (1)
  1. ZEPATIER [Suspect]
     Active Substance: ELBASVIR\GRAZOPREVIR
     Indication: HEPATITIS C
     Dosage: 1 TABLET ONCE PER DAY, 12 WEEK ZEPATIER THERAPY REGIMEN
     Route: 048

REACTIONS (2)
  - Dialysis [Recovering/Resolving]
  - Haemoglobin decreased [Recovering/Resolving]
